FAERS Safety Report 21363827 (Version 1)
Quarter: 2022Q3

REPORT INFORMATION
  Report Type: Spontaneous
  Country: US (occurrence: None)
  Receive Date: 20220921
  Receipt Date: 20220921
  Transmission Date: 20221026
  Serious: No
  Sender: FDA-Public Use
  Company Number: None

PATIENT
  Age: 32 Year
  Sex: Female
  Weight: 42.75 kg

DRUGS (3)
  1. METHYLPHENIDATE [Suspect]
     Active Substance: METHYLPHENIDATE
     Indication: Attention deficit hyperactivity disorder
     Dosage: 30 TABLETS ORAL
     Route: 048
     Dates: start: 20220801, end: 20220815
  2. VITAMIN D [Concomitant]
     Active Substance: VITAMIN D NOS
  3. PROBIOTICS NOS [Concomitant]
     Active Substance: PROBIOTICS NOS

REACTIONS (9)
  - Product substitution issue [None]
  - Product quality issue [None]
  - Anxiety [None]
  - Tension [None]
  - Feeling abnormal [None]
  - Withdrawal syndrome [None]
  - Fatigue [None]
  - Headache [None]
  - Insomnia [None]
